FAERS Safety Report 5186714-7 (Version None)
Quarter: 2006Q4

REPORT INFORMATION
  Report Type: 
  Country: None (occurrence: None)
  Receive Date: 20061213
  Receipt Date: 20061102
  Transmission Date: 20070319
  Serious: Yes (Other)
  Sender: FDA-Public Use
  Company Number: 060189

PATIENT
  Age: 79 Year
  Sex: Male
  Weight: 89.8122 kg

DRUGS (12)
  1. GOLYTELY [Suspect]
     Indication: COLONOSCOPY
     Dosage: 2 GLASSES, 1X, PO
     Route: 048
     Dates: start: 20061101
  2. BLOOD PRESSURE MEDICATION [Concomitant]
  3. COUMADIN [Concomitant]
  4. VICODIN [Concomitant]
  5. LASIX [Concomitant]
  6. LISINOPRIL [Concomitant]
  7. SERTRALINE [Concomitant]
  8. GEMFIBROZIL [Concomitant]
  9. GABAPENTIN [Concomitant]
  10. METOPROLOL SUCCINATE [Concomitant]
  11. FELODIPINE [Concomitant]
  12. ZOLPIDEM TARTRATE [Concomitant]

REACTIONS (2)
  - ANGIONEUROTIC OEDEMA [None]
  - SWOLLEN TONGUE [None]
